FAERS Safety Report 7256720-7 (Version None)
Quarter: 2011Q1

REPORT INFORMATION
  Report Type: 
  Country: None (occurrence: None)
  Receive Date: 20110129
  Receipt Date: 20100722
  Transmission Date: 20110831
  Serious: No
  Sender: FDA-Public Use
  Company Number: US-ABBOTT-10P-163-0659408-00

PATIENT
  Age: 22 Year
  Sex: Female

DRUGS (4)
  1. PRILOSEC [Concomitant]
     Indication: GASTRIC ULCER
  2. HUMIRA [Suspect]
     Dates: start: 20100726, end: 20100726
  3. HUMIRA [Suspect]
  4. HUMIRA [Suspect]
     Indication: CROHN'S DISEASE
     Dates: start: 20100712, end: 20100712

REACTIONS (2)
  - INJECTION SITE HAEMORRHAGE [None]
  - INJECTION SITE HAEMATOMA [None]
